FAERS Safety Report 8317804-5 (Version None)
Quarter: 2012Q2

REPORT INFORMATION
  Report Type: 
  Country: None (occurrence: None)
  Receive Date: 20120427
  Receipt Date: 20120421
  Transmission Date: 20120825
  Serious: Yes (Hospitalization, Other)
  Sender: FDA-Public Use
  Company Number: US-BAYER-2012-024115

PATIENT
  Age: 33 Year
  Sex: Female
  Weight: 77.098 kg

DRUGS (3)
  1. CYMBALTA [Concomitant]
     Indication: DEPRESSION
     Dosage: UNK
     Dates: start: 20080831, end: 20091129
  2. SOLU-MEDROL [Concomitant]
     Indication: HEADACHE
  3. YAZ [Suspect]
     Indication: PREMENSTRUAL SYNDROME
     Dosage: UNK
     Dates: start: 20080923, end: 20090626

REACTIONS (21)
  - GAIT DISTURBANCE [None]
  - NAUSEA [None]
  - DIZZINESS [None]
  - CEREBROVASCULAR ACCIDENT [None]
  - FACIAL PAIN [None]
  - FRUSTRATION [None]
  - EMOTIONAL DISTRESS [None]
  - HYPERHIDROSIS [None]
  - MIGRAINE [None]
  - SPEECH DISORDER [None]
  - DEPRESSED MOOD [None]
  - HYPERLIPIDAEMIA [None]
  - MEMORY IMPAIRMENT [None]
  - ASTHENIA [None]
  - HEADACHE [None]
  - COGNITIVE DISORDER [None]
  - PARAESTHESIA [None]
  - HYPOAESTHESIA [None]
  - CLUMSINESS [None]
  - ISCHAEMIC STROKE [None]
  - ANXIETY [None]
